FAERS Safety Report 8708212 (Version 4)
Quarter: 2012Q4

REPORT INFORMATION
  Report Type: 
  Country: JP (occurrence: JP)
  Receive Date: 20120806
  Receipt Date: 20120920
  Transmission Date: 20130627
  Serious: Yes (Other)
  Sender: FDA-Public Use
  Company Number: PHHY2012JP066535

PATIENT
  Age: 29 Year
  Sex: Female

DRUGS (5)
  1. TEGRETOL [Suspect]
     Indication: EPILEPSY
     Route: 048
  2. VALPROIC ACID [Suspect]
     Indication: EPILEPSY
     Route: 048
  3. CLOBAZAM [Suspect]
     Indication: EPILEPSY
     Route: 048
  4. TOPIRAMATE [Suspect]
     Indication: EPILEPSY
     Route: 048
  5. LAMOTRIGINE [Suspect]
     Indication: EPILEPSY
     Route: 048

REACTIONS (8)
  - Osteoporosis [Unknown]
  - Blood alkaline phosphatase increased [Unknown]
  - Blood phosphorus decreased [Unknown]
  - Blood parathyroid hormone increased [Unknown]
  - Blood calcium decreased [Unknown]
  - Osteomalacia [Unknown]
  - Vitamin D decreased [Unknown]
  - Drug ineffective [Unknown]
